APPROVED DRUG PRODUCT: FERRIPROX
Active Ingredient: DEFERIPRONE
Strength: 500MG
Dosage Form/Route: TABLET;ORAL
Application: N021825 | Product #001 | TE Code: AB
Applicant: CHIESI USA INC
Approved: Oct 14, 2011 | RLD: Yes | RS: No | Type: RX

EXCLUSIVITY:
Code: ODE-417 | Date: Apr 30, 2028
Code: ODE-420 | Date: Apr 30, 2028
Code: ODE-421 | Date: Apr 30, 2028